FAERS Safety Report 5146795-3 (Version None)
Quarter: 2006Q4

REPORT INFORMATION
  Report Type: 
  Country: None (occurrence: None)
  Receive Date: 20061102
  Receipt Date: 20061018
  Transmission Date: 20070319
  Serious: Yes (Hospitalization)
  Sender: FDA-Public Use
  Company Number: 2006S1009038

PATIENT
  Age: 74 Year
  Sex: Male
  Weight: 93.441 kg

DRUGS (24)
  1. DOXEPIN HYDROCHLORIDE [Suspect]
     Dosage: SEE IMAGE
     Route: 048
     Dates: start: 19970101, end: 20051221
  2. DOXEPIN HYDROCHLORIDE [Suspect]
     Dosage: SEE IMAGE
     Route: 048
     Dates: start: 20051221
  3. SUTENT [Suspect]
     Indication: RENAL CELL CARCINOMA STAGE UNSPECIFIED
     Dosage: 37.5 MG; QD; PO
     Route: 048
     Dates: start: 20051026
  4. HYDROCODONE [Suspect]
     Dosage: 10 MG; HS; PO
     Route: 048
     Dates: start: 20000801, end: 20051221
  5. DIAZEPAM [Suspect]
     Dosage: SEE IMAGE
     Route: 048
     Dates: start: 19990101, end: 20051221
  6. DIAZEPAM [Suspect]
     Dosage: SEE IMAGE
     Route: 048
     Dates: start: 20051221
  7. AMBIEN [Suspect]
     Dosage: SEE IMAGE
     Route: 048
     Dates: start: 19990101, end: 20051221
  8. AMBIEN [Suspect]
     Dosage: SEE IMAGE
     Route: 048
     Dates: start: 20051221
  9. OXYCODONE HCL [Concomitant]
  10. METFORMIN [Concomitant]
  11. INSULIN GLARGINE [Concomitant]
  12. ATORVASTATIN CALCIUM [Concomitant]
  13. EZETIMIBE [Concomitant]
  14. RAMIPRIL [Concomitant]
  15. ATENOLOL [Concomitant]
  16. TAMSULOSIN HCL [Concomitant]
  17. FINASTERIDE [Concomitant]
  18. RANITIDINE [Concomitant]
  19. MONTELUKAST [Concomitant]
  20. SALMETEROL XINAFOATE [Concomitant]
  21. FLUTICASONE PROPIONATE [Concomitant]
  22. URSODEOXYCHOLIC ACID [Concomitant]
  23. MIRTAZAPINE [Concomitant]
  24. DOCUSATE SODIUM [Concomitant]

REACTIONS (4)
  - HYPOTENSION [None]
  - METABOLIC ENCEPHALOPATHY [None]
  - PYREXIA [None]
  - TOXIC INDUCED ENCEPHALOPATHY [None]
